FAERS Safety Report 6378652-9 (Version None)
Quarter: 2009Q3

REPORT INFORMATION
  Report Type: 
  Country: None (occurrence: None)
  Receive Date: 20090928
  Receipt Date: 20090916
  Transmission Date: 20100115
  Serious: Yes (Hospitalization)
  Sender: FDA-Public Use
  Company Number: US-ELI_LILLY_AND_COMPANY-US200909003989

PATIENT
  Sex: Male
  Weight: 65.76 kg

DRUGS (6)
  1. GSK3 INHIBITOR (LY2090314) [Suspect]
     Indication: OESOPHAGEAL CANCER METASTATIC
     Dosage: 80 MG, OTHER
     Route: 042
     Dates: start: 20090722
  2. PEMETREXED [Suspect]
     Indication: OESOPHAGEAL CANCER METASTATIC
     Dosage: 500 MG/M2, OTHER
     Route: 042
     Dates: start: 20090729
  3. CARBOPLATIN [Suspect]
     Indication: OESOPHAGEAL CANCER METASTATIC
     Dosage: 6 D/F, OTHER
     Route: 042
     Dates: start: 20090729
  4. FOLIC ACID [Concomitant]
     Indication: PREMEDICATION
     Dates: start: 20090722
  5. VITAMIN B-12 [Concomitant]
     Indication: PREMEDICATION
     Dates: start: 20090722
  6. DEXAMETHASONE [Concomitant]
     Indication: PREMEDICATION
     Dates: start: 20090729

REACTIONS (1)
  - DEHYDRATION [None]
